FAERS Safety Report 6032763-6 (Version None)
Quarter: 2009Q1

REPORT INFORMATION
  Report Type: 
  Country: None (occurrence: None)
  Receive Date: 20090109
  Receipt Date: 20090105
  Transmission Date: 20090719
  Serious: Yes (Life-Threatening)
  Sender: FDA-Public Use
  Company Number: US-ROCHE-604295

PATIENT
  Sex: Male

DRUGS (1)
  1. ISOTRETINOIN [Suspect]
     Dosage: THE PATIENT WAS DISPENSED 20 MG ISOTRETINOIN ON 9 SEPTEMBER 2008
     Route: 048
     Dates: start: 20080909, end: 20081216

REACTIONS (1)
  - SUICIDAL IDEATION [None]
